FAERS Safety Report 5202065-6 (Version None)
Quarter: 2007Q1

REPORT INFORMATION
  Report Type: 
  Country: None (occurrence: None)
  Receive Date: 20070103
  Receipt Date: 20061221
  Transmission Date: 20070707
  Serious: Yes (Death)
  Sender: FDA-Public Use
  Company Number: HQWYE444720JAN06

PATIENT
  Age: 14 Year
  Sex: Female

DRUGS (5)
  1. EFFEXOR XR [Suspect]
     Indication: DEPRESSION
     Dosage: 150 MG 1X PER 1 DAY; SEE IMAGE
     Route: 048
     Dates: start: 20040812, end: 20040926
  2. EFFEXOR XR [Suspect]
     Indication: DEPRESSION
     Dosage: 150 MG 1X PER 1 DAY; SEE IMAGE
     Route: 048
     Dates: start: 20040927, end: 20041008
  3. ZOLPIDEM TARTRATE [Concomitant]
  4. ENDEP [Concomitant]
  5. DIANE-35 ED (CYPROTERONE ACETATE/ETHINYLESTRADIOL) [Concomitant]

REACTIONS (23)
  - ABNORMAL BEHAVIOUR [None]
  - AGGRESSION [None]
  - COMPLETED SUICIDE [None]
  - CONDITION AGGRAVATED [None]
  - CONTUSION [None]
  - DEPRESSION [None]
  - DRUG ABUSER [None]
  - ELEVATED MOOD [None]
  - FATIGUE [None]
  - INFLUENZA LIKE ILLNESS [None]
  - INJURY ASPHYXIATION [None]
  - INSOMNIA [None]
  - LACERATION [None]
  - LIMB INJURY [None]
  - MANIA [None]
  - MENORRHAGIA [None]
  - MENTAL DISORDER [None]
  - NEGATIVISM [None]
  - PAIN [None]
  - REFUSAL OF TREATMENT BY PATIENT [None]
  - SELF INJURIOUS BEHAVIOUR [None]
  - SUICIDE ATTEMPT [None]
  - VERBAL ABUSE [None]
